FAERS Safety Report 23840984 (Version 1)
Quarter: 2024Q2

REPORT INFORMATION
  Report Type: Spontaneous
  Country: PL (occurrence: PL)
  Receive Date: 20240510
  Receipt Date: 20240510
  Transmission Date: 20240716
  Serious: Yes (Death, Hospitalization, Other)
  Sender: FDA-Public Use
  Company Number: PL-SANDOZ-SDZ2024PL046627

PATIENT
  Age: 80 Year
  Sex: Female

DRUGS (1)
  1. METHOTREXATE [Suspect]
     Active Substance: METHOTREXATE
     Indication: Rheumatoid arthritis
     Dosage: 12.5 MG, QW, 5 TABLETS ONCE A WEEK
     Route: 065

REACTIONS (10)
  - Respiratory failure [Fatal]
  - Pyrexia [Unknown]
  - Stomatitis [Unknown]
  - Pancytopenia [Unknown]
  - Pneumonia [Unknown]
  - Upper gastrointestinal haemorrhage [Unknown]
  - Haematemesis [Unknown]
  - Urinary tract infection [Unknown]
  - Toxicity to various agents [Unknown]
  - Accidental overdose [Unknown]
